FAERS Safety Report 8779836 (Version 1)
Quarter: 2012Q4

REPORT INFORMATION
  Report Type: 
  Country: CH (occurrence: CH)
  Receive Date: 20120914
  Receipt Date: 20120914
  Transmission Date: 20130627
  Serious: Yes (Life-Threatening, Hospitalization)
  Sender: FDA-Public Use
  Company Number: CH-ASTRAZENECA-2012SE70675

PATIENT
  Age: 33 Year
  Sex: Female

DRUGS (6)
  1. SEROQUEL [Suspect]
     Route: 048
     Dates: end: 20120531
  2. SEROQUEL [Suspect]
     Route: 048
     Dates: end: 20120531
  3. ZOLOFT [Suspect]
     Indication: DEPRESSION
     Dosage: 30 TABLETS, 50 MG EACH
     Route: 048
     Dates: end: 20120530
  4. FLUOXETIN [Suspect]
     Indication: DEPRESSION
     Dosage: 20 MG, THREE TIMES IN THE MORNING, LONG TERM
     Route: 048
  5. LITHIUM CARBONATE [Suspect]
     Route: 048
     Dates: end: 20120531
  6. NALTREXONE [Suspect]
     Dosage: 50 MG; ONE IN THE MORNING, ONE AT NIGHT
     Route: 048
     Dates: end: 20120531

REACTIONS (4)
  - Intentional overdose [Unknown]
  - Suicide attempt [Unknown]
  - Serotonin syndrome [Unknown]
  - Electrocardiogram QT prolonged [Unknown]
